FAERS Safety Report 15277297 (Version 2)
Quarter: 2018Q3

REPORT INFORMATION
  Report Type: Spontaneous
  Country: US (occurrence: US)
  Receive Date: 20180814
  Receipt Date: 20180925
  Transmission Date: 20181010
  Serious: No
  Sender: FDA-Public Use
  Company Number: US-PFIZER INC-2018327301

PATIENT
  Age: 46 Year
  Sex: Male
  Weight: 72 kg

DRUGS (6)
  1. GABAPENTIN. [Suspect]
     Active Substance: GABAPENTIN
     Indication: NERVE BLOCK
  2. GABAPENTIN. [Suspect]
     Active Substance: GABAPENTIN
     Indication: NEURALGIA
     Dosage: 200 MG, 4X/DAY (800 MG)
     Route: 048
     Dates: start: 20180706, end: 20180808
  3. XELODA [Concomitant]
     Active Substance: CAPECITABINE
     Indication: COLON CANCER
     Dosage: 1000 MG, TWICE A DAY (BID)
     Dates: start: 20180808
  4. GABAPENTIN. [Suspect]
     Active Substance: GABAPENTIN
     Indication: COLON CANCER
  5. GABAPENTIN. [Suspect]
     Active Substance: GABAPENTIN
     Indication: NEUROPATHY PERIPHERAL
  6. OXALIPLATIN. [Concomitant]
     Active Substance: OXALIPLATIN
     Indication: COLON CANCER
     Dosage: UNK
     Dates: start: 20180129

REACTIONS (2)
  - Rash [Recovered/Resolved]
  - Drug ineffective for unapproved indication [Unknown]

NARRATIVE: CASE EVENT DATE: 2018
